FAERS Safety Report 16407716 (Version 2)
Quarter: 2019Q3

REPORT INFORMATION
  Report Type: Report from Study
  Country: AU (occurrence: AU)
  Receive Date: 20190609
  Receipt Date: 20190702
  Transmission Date: 20191004
  Serious: Yes (Life-Threatening, Disabling)
  Sender: FDA-Public Use
  Company Number: PHHO2019AU005871

PATIENT
  Age: 67 Year
  Sex: Female
  Weight: 70.4 kg

DRUGS (10)
  1. BYL719 [Suspect]
     Active Substance: ALPELISIB
     Indication: BREAST CANCER
     Dosage: 350 MG, UNK
     Route: 048
     Dates: start: 20190522, end: 20190530
  2. DENOSUMAB [Concomitant]
     Active Substance: DENOSUMAB
     Indication: BONE PAIN
     Dosage: 120 MG, QMO
     Route: 065
  3. PANTOPRAZOLE [Concomitant]
     Active Substance: PANTOPRAZOLE
     Indication: PROPHYLAXIS
     Dosage: 8 MG, PRN
     Route: 048
     Dates: start: 20190522, end: 20190530
  4. DILAUDID [Concomitant]
     Active Substance: HYDROMORPHONE HYDROCHLORIDE
     Indication: BONE PAIN
     Dosage: 2 MG, PRN
     Route: 065
     Dates: start: 20190513
  5. JURNISTA [Concomitant]
     Active Substance: HYDROMORPHONE HYDROCHLORIDE
     Indication: BONE PAIN
     Dosage: 8 MG, QD
     Route: 065
     Dates: end: 20190530
  6. CELECOXIB. [Concomitant]
     Active Substance: CELECOXIB
     Indication: BONE PAIN
     Dosage: 200 MG, BID
     Route: 065
     Dates: start: 20190522, end: 20190531
  7. IRBESARTAN. [Concomitant]
     Active Substance: IRBESARTAN
     Indication: HYPERTENSION
     Dosage: 150 MG, QD
     Route: 065
     Dates: end: 20190530
  8. BYL719 [Suspect]
     Active Substance: ALPELISIB
     Dosage: 300 MG, UNK
     Route: 048
     Dates: start: 20190607
  9. TAPENTADOL [Concomitant]
     Active Substance: TAPENTADOL
     Indication: BONE PAIN
     Dosage: 50 MG, PRN
     Route: 065
     Dates: start: 201901
  10. PARACETAMOL [Concomitant]
     Active Substance: ACETAMINOPHEN
     Indication: BONE PAIN
     Dosage: 1 G, PRN
     Route: 065
     Dates: start: 2018

REACTIONS (2)
  - Hyperglycaemia [Recovered/Resolved]
  - Blood creatinine increased [Recovered/Resolved]

NARRATIVE: CASE EVENT DATE: 20190530
